FAERS Safety Report 9714014 (Version 1)
Quarter: 2013Q4

REPORT INFORMATION
  Report Type: Spontaneous
  Country: US (occurrence: US)
  Receive Date: 20131126
  Receipt Date: 20131126
  Transmission Date: 20140711
  Serious: No
  Sender: FDA-Public Use
  Company Number: US-GILEAD-2008-0018552

PATIENT
  Sex: Male
  Weight: 113.4 kg

DRUGS (19)
  1. LETAIRIS [Suspect]
     Indication: PULMONARY ARTERIAL HYPERTENSION
     Route: 048
     Dates: start: 20080929
  2. LISINOPRIL [Concomitant]
  3. CARTIA [Concomitant]
  4. TOPROL XL [Concomitant]
  5. VYTORIN [Concomitant]
  6. ASPIRIN EC [Concomitant]
  7. LASIX [Concomitant]
  8. K-PHOS [Concomitant]
  9. FLOMAX [Concomitant]
  10. WARFARIN [Concomitant]
  11. LANTUS [Concomitant]
  12. HUMULIN L INSULIN [Concomitant]
  13. RAPAMUNE [Concomitant]
  14. NIASPAN [Concomitant]
  15. CYCLOSPORINE [Concomitant]
  16. PREVACID [Concomitant]
  17. ALLOPURINOL [Concomitant]
  18. FERROUS SULFATE [Concomitant]
  19. TESTOSTERONE [Concomitant]

REACTIONS (1)
  - Drug intolerance [None]
